FAERS Safety Report 6382605-4 (Version None)
Quarter: 2009Q3

REPORT INFORMATION
  Report Type: 
  Country: None (occurrence: None)
  Receive Date: 20090930
  Receipt Date: 20090929
  Transmission Date: 20100115
  Serious: Yes (Other)
  Sender: FDA-Public Use
  Company Number: B0595654A

PATIENT
  Sex: Male
  Weight: 79 kg

DRUGS (8)
  1. REQUIP [Suspect]
     Indication: PARKINSON'S DISEASE
     Dosage: 2MG PER DAY
     Route: 048
     Dates: start: 20090723, end: 20090812
  2. TOPIRAMATE [Concomitant]
     Indication: EPILEPSY
     Route: 048
     Dates: start: 20020101
  3. LAMOTRIGINE [Concomitant]
     Indication: EPILEPSY
     Route: 048
     Dates: start: 20020101
  4. LISINOPRIL [Concomitant]
     Route: 048
     Dates: start: 20010101
  5. HYDROCHLOROTHIAZIDE [Concomitant]
     Route: 048
     Dates: start: 20010101
  6. TICLOPIDINE HYDROCHLORIDE [Concomitant]
     Indication: CEREBROVASCULAR ACCIDENT
     Route: 048
     Dates: start: 20020101
  7. SIMVASTATIN [Concomitant]
     Route: 048
     Dates: start: 20020101
  8. ACARBOSE [Concomitant]
     Route: 048
     Dates: start: 20010101

REACTIONS (2)
  - EPILEPSY [None]
  - SIMPLE PARTIAL SEIZURES [None]
